FAERS Safety Report 5807730-5 (Version None)
Quarter: 2008Q3

REPORT INFORMATION
  Report Type: 
  Country: None (occurrence: None)
  Receive Date: 20080711
  Receipt Date: 20080702
  Transmission Date: 20090109
  Serious: Yes (Hospitalization, Other)
  Sender: FDA-Public Use
  Company Number: JP-PFIZER INC-2008055749

PATIENT
  Age: 80 Year
  Sex: Female

DRUGS (2)
  1. ZOLOFT [Suspect]
     Dosage: DAILY DOSE:25MG
     Route: 048
  2. PAXIL [Suspect]
     Dosage: DAILY DOSE:10MG
     Route: 048
     Dates: start: 20080605, end: 20080605

REACTIONS (6)
  - ASTHMA [None]
  - DELIRIUM [None]
  - DEMENTIA [None]
  - DIZZINESS [None]
  - FALL [None]
  - HYPONATRAEMIA [None]
